FAERS Safety Report 5759056-6 (Version None)
Quarter: 2008Q2

REPORT INFORMATION
  Report Type: 
  Country: None (occurrence: None)
  Receive Date: 20080604
  Receipt Date: 20080526
  Transmission Date: 20081010
  Serious: Yes (Congenital Anomaly)
  Sender: FDA-Public Use
  Company Number: GB-ABBOTT-08P-167-0441248-00

PATIENT
  Sex: Male

DRUGS (1)
  1. VALPROATE SODIUM [Suspect]
     Indication: DRUG EXPOSURE DURING PREGNANCY
     Route: 064

REACTIONS (28)
  - ABNORMAL BEHAVIOUR [None]
  - ANOMALY OF EXTERNAL EAR CONGENITAL [None]
  - AUTISM [None]
  - COGNITIVE DISORDER [None]
  - CONGENITAL FOOT MALFORMATION [None]
  - CONGENITAL NOSE MALFORMATION [None]
  - DEVELOPMENTAL DELAY [None]
  - DISTURBANCE IN ATTENTION [None]
  - DRUG EXPOSURE DURING PREGNANCY [None]
  - DYSMORPHISM [None]
  - ECHOLALIA [None]
  - EXPRESSIVE LANGUAGE DISORDER [None]
  - FINE MOTOR DELAY [None]
  - FOETAL ANTICONVULSANT SYNDROME [None]
  - FOOT DEFORMITY [None]
  - HEARING IMPAIRED [None]
  - HYPERACUSIS [None]
  - HYPERMOBILITY SYNDROME [None]
  - HYPOKINESIA [None]
  - HYPOSPADIAS [None]
  - HYPOTONIA [None]
  - HYPOTONIA NEONATAL [None]
  - LIGAMENT LAXITY [None]
  - LIP DISORDER [None]
  - PSYCHOMOTOR SKILLS IMPAIRED [None]
  - SPEECH DISORDER [None]
  - SPEECH DISORDER DEVELOPMENTAL [None]
  - SUPERNUMERARY NIPPLE [None]
